FAERS Safety Report 11637881 (Version 1)
Quarter: 2015Q4

REPORT INFORMATION
  Report Type: Spontaneous
  Country: US (occurrence: US)
  Receive Date: 20151016
  Receipt Date: 20151016
  Transmission Date: 20160304
  Serious: Yes (Death, Hospitalization)
  Sender: FDA-Public Use
  Company Number: US-BAYER-2015-399302

PATIENT
  Age: 97 Year
  Sex: Male

DRUGS (20)
  1. ACETYLSALICYLIC ACID({=100 MG) [Suspect]
     Active Substance: ASPIRIN
     Indication: ISCHAEMIC HEART DISEASE PROPHYLAXIS
  2. NAPROSYN [Suspect]
     Active Substance: NAPROXEN
     Indication: PAIN
     Dosage: UNK
  3. LISINOPRIL. [Concomitant]
     Active Substance: LISINOPRIL
     Indication: PRODUCT USED FOR UNKNOWN INDICATION
     Dosage: UNK
     Route: 065
     Dates: start: 2007, end: 20140817
  4. NAPROSYN [Suspect]
     Active Substance: NAPROXEN
     Indication: PAIN
  5. HYDROCHLOROTHIAZIDE. [Concomitant]
     Active Substance: HYDROCHLOROTHIAZIDE
     Indication: PRODUCT USED FOR UNKNOWN INDICATION
     Dosage: UNK
     Route: 065
     Dates: start: 2007, end: 20140817
  6. XARELTO [Suspect]
     Active Substance: RIVAROXABAN
     Indication: DEEP VEIN THROMBOSIS
     Dosage: UNK
     Route: 048
     Dates: start: 20140807, end: 20140813
  7. PONSTEL [Suspect]
     Active Substance: MEFENAMIC ACID
     Indication: PAIN
     Dosage: UNK
  8. VITAMIN B12 [Concomitant]
     Active Substance: CYANOCOBALAMIN
     Indication: PRODUCT USED FOR UNKNOWN INDICATION
     Dosage: UNK
     Route: 065
     Dates: end: 2014
  9. PONSTEL [Suspect]
     Active Substance: MEFENAMIC ACID
     Indication: PAIN
  10. ANSAID [Suspect]
     Active Substance: FLURBIPROFEN
     Indication: PAIN
     Dosage: UNK
  11. ACULAR [Suspect]
     Active Substance: KETOROLAC TROMETHAMINE
     Indication: PAIN
  12. ALLOPURINOL. [Concomitant]
     Active Substance: ALLOPURINOL
     Indication: PRODUCT USED FOR UNKNOWN INDICATION
     Dosage: UNK
     Route: 065
     Dates: start: 1999, end: 20140817
  13. LODINE [Concomitant]
     Active Substance: ETODOLAC
     Indication: PAIN
     Route: 065
  14. TORADOL [Suspect]
     Active Substance: KETOROLAC TROMETHAMINE
     Indication: PAIN
  15. ACULAR [Suspect]
     Active Substance: KETOROLAC TROMETHAMINE
     Indication: PAIN
     Dosage: UNK
  16. PIROXICAM. [Suspect]
     Active Substance: PIROXICAM
     Indication: PAIN
  17. LODINE [Concomitant]
     Active Substance: ETODOLAC
     Indication: PAIN
     Dosage: UNK
     Route: 065
  18. XARELTO [Suspect]
     Active Substance: RIVAROXABAN
     Indication: EMBOLISM VENOUS
  19. ANSAID [Suspect]
     Active Substance: FLURBIPROFEN
     Indication: PAIN
  20. PIROXICAM. [Suspect]
     Active Substance: PIROXICAM
     Indication: PAIN
     Route: 065

REACTIONS (2)
  - Upper gastrointestinal haemorrhage [Fatal]
  - Acute kidney injury [Fatal]

NARRATIVE: CASE EVENT DATE: 201408
